FAERS Safety Report 11808843 (Version 3)
Quarter: 2016Q4

REPORT INFORMATION
  Report Type: Spontaneous
  Country: US (occurrence: US)
  Receive Date: 20151207
  Receipt Date: 20161118
  Transmission Date: 20170206
  Serious: Yes (Other)
  Sender: FDA-Public Use
  Company Number: US-ROCHE-1625635

PATIENT
  Sex: Female

DRUGS (3)
  1. ACTEMRA [Suspect]
     Active Substance: TOCILIZUMAB
     Indication: RHEUMATOID ARTHRITIS
     Route: 058
     Dates: start: 20141018
  2. LYRICA [Concomitant]
     Active Substance: PREGABALIN
  3. MAGNESIUM CITRATE. [Concomitant]
     Active Substance: MAGNESIUM CITRATE

REACTIONS (7)
  - Injection site pruritus [Unknown]
  - Injection site mass [Unknown]
  - Thrombosis [Unknown]
  - Drug ineffective [Unknown]
  - Syringe issue [Unknown]
  - Pruritus generalised [Unknown]
  - Pain [Unknown]
